FAERS Safety Report 24318087 (Version 1)
Quarter: 2024Q3

REPORT INFORMATION
  Report Type: Spontaneous
  Country: CN (occurrence: CN)
  Receive Date: 20240913
  Receipt Date: 20240913
  Transmission Date: 20241017
  Serious: Yes (Hospitalization, Other)
  Sender: SANOFI AVENTIS
  Company Number: CN-SA-2024SA261709

PATIENT
  Age: 89 Year
  Sex: Female

DRUGS (3)
  1. ZOLPIDEM TARTRATE [Suspect]
     Active Substance: ZOLPIDEM TARTRATE
     Indication: Sleep disorder
     Dosage: 0.5 DF, QD
     Route: 048
     Dates: start: 20240829, end: 20240830
  2. LORATADINE [Suspect]
     Active Substance: LORATADINE
     Indication: Rash
     Dosage: 1 DF, QD
     Route: 048
     Dates: start: 20240827, end: 20240906
  3. CETIRIZINE HYDROCHLORIDE [Suspect]
     Active Substance: CETIRIZINE HYDROCHLORIDE
     Indication: Rash
     Dosage: 1 DF, QD
     Route: 048
     Dates: start: 20240827, end: 20240906

REACTIONS (2)
  - Subdural haematoma [Recovering/Resolving]
  - Fall [Recovering/Resolving]

NARRATIVE: CASE EVENT DATE: 20240831
